FAERS Safety Report 6561792-9 (Version None)
Quarter: 2010Q1

REPORT INFORMATION
  Report Type: 
  Country: None (occurrence: None)
  Receive Date: 20100130
  Receipt Date: 20091027
  Transmission Date: 20100710
  Serious: No
  Sender: FDA-Public Use
  Company Number: US-ABBOTT-09P-163-0605297-00

PATIENT
  Sex: Female
  Weight: 61.29 kg

DRUGS (5)
  1. HUMIRA [Suspect]
     Indication: RHEUMATOID ARTHRITIS
     Dates: start: 20041002, end: 20070101
  2. HUMIRA [Suspect]
     Dates: start: 20070401
  3. METHOTREXATE [Concomitant]
     Indication: DRUG USE FOR UNKNOWN INDICATION
  4. PERCOCET [Concomitant]
     Indication: PAIN
  5. VALIUM [Concomitant]
     Indication: INSOMNIA

REACTIONS (2)
  - ASTHENIA [None]
  - JOINT RANGE OF MOTION DECREASED [None]
